FAERS Safety Report 6314719-9 (Version None)
Quarter: 2009Q3

REPORT INFORMATION
  Report Type: 
  Country: None (occurrence: None)
  Receive Date: 20090817
  Receipt Date: 20090803
  Transmission Date: 20100115
  Serious: Yes (Hospitalization)
  Sender: FDA-Public Use
  Company Number: ENT 2009-0060

PATIENT
  Age: 78 Year
  Sex: Female

DRUGS (13)
  1. COMTAN [Suspect]
     Indication: DRUG EFFECT DECREASED
     Dosage: 100 MG (100 MG, 1 IN 1 D) ORAL; 300 MG (100 MG, 3 IN 1 D) ORAL
     Route: 048
     Dates: start: 20090115, end: 20090218
  2. COMTAN [Suspect]
     Indication: PARKINSON'S DISEASE
     Dosage: 100 MG (100 MG, 1 IN 1 D) ORAL; 300 MG (100 MG, 3 IN 1 D) ORAL
     Route: 048
     Dates: start: 20090115, end: 20090218
  3. COMTAN [Suspect]
     Indication: DRUG EFFECT DECREASED
     Dosage: 100 MG (100 MG, 1 IN 1 D) ORAL; 300 MG (100 MG, 3 IN 1 D) ORAL
     Route: 048
     Dates: start: 20090219
  4. COMTAN [Suspect]
     Indication: PARKINSON'S DISEASE
     Dosage: 100 MG (100 MG, 1 IN 1 D) ORAL; 300 MG (100 MG, 3 IN 1 D) ORAL
     Route: 048
     Dates: start: 20090219
  5. PURSENNIDE [Concomitant]
  6. EC DOPARL [Concomitant]
  7. SELEGILINE HCL [Concomitant]
  8. TRIHEXYPHENIDYL HCL [Concomitant]
  9. KETAS [Concomitant]
  10. JUVELA NICOTINATE [Concomitant]
  11. GASMOTIN [Concomitant]
  12. MAGMITT KENEI [Concomitant]
  13. HERBAL EXTRACTS NOS [Concomitant]

REACTIONS (3)
  - DECREASED ACTIVITY [None]
  - SALIVA DISCOLOURATION [None]
  - WRONG TECHNIQUE IN DRUG USAGE PROCESS [None]
